FAERS Safety Report 4910297-7 (Version None)
Quarter: 2006Q1

REPORT INFORMATION
  Report Type: 
  Country: None (occurrence: None)
  Receive Date: 20060209
  Receipt Date: 20060130
  Transmission Date: 20060701
  Serious: Yes (Other)
  Sender: FDA-Public Use
  Company Number: 2004-BP-09881RO

PATIENT
  Age: 29 Year
  Sex: Male

DRUGS (3)
  1. AZATHIOPRINE [Suspect]
     Indication: CROHN'S DISEASE
     Dosage: 2 MG/KG/DAY (150 MG)
     Dates: start: 20020701
  2. INFLIXIMAB (INFLIXIMAB) [Suspect]
     Indication: CROHN'S DISEASE
     Dosage: 5 MG/KG, IV
     Route: 042
     Dates: start: 20020801
  3. PREDNISOLONE [Concomitant]

REACTIONS (5)
  - ASTHENIA [None]
  - C-REACTIVE PROTEIN INCREASED [None]
  - LYMPHOCYTE COUNT DECREASED [None]
  - PNEUMOCYSTIS JIROVECI PNEUMONIA [None]
  - WHITE BLOOD CELL COUNT DECREASED [None]
